FAERS Safety Report 13512143 (Version 4)
Quarter: 2017Q2

REPORT INFORMATION
  Report Type: Report from Study
  Country: US (occurrence: US)
  Receive Date: 20170504
  Receipt Date: 20170619
  Transmission Date: 20170830
  Serious: Yes (Other)
  Sender: FDA-Public Use
  Company Number: US-JNJFOC-20170116675

PATIENT
  Age: 64 Year
  Sex: Male

DRUGS (9)
  1. ZANTAC [Concomitant]
     Active Substance: RANITIDINE HYDROCHLORIDE
  2. IMBRUVICA [Suspect]
     Active Substance: IBRUTINIB
     Indication: CHRONIC LYMPHOCYTIC LEUKAEMIA
     Route: 048
     Dates: start: 20170111, end: 20170116
  3. PROTONIX [Concomitant]
     Active Substance: PANTOPRAZOLE SODIUM
  4. LEVOTHYROXIN [Concomitant]
     Active Substance: LEVOTHYROXINE
  5. TUMS [Concomitant]
     Active Substance: CALCIUM CARBONATE
  6. IMBRUVICA [Suspect]
     Active Substance: IBRUTINIB
     Indication: CHRONIC LYMPHOCYTIC LEUKAEMIA
     Route: 048
     Dates: start: 20160608
  7. IMBRUVICA [Suspect]
     Active Substance: IBRUTINIB
     Indication: CHRONIC LYMPHOCYTIC LEUKAEMIA
     Route: 048
     Dates: start: 20160707
  8. ALLOPURINOL. [Concomitant]
     Active Substance: ALLOPURINOL
  9. IMBRUVICA [Suspect]
     Active Substance: IBRUTINIB
     Indication: CHRONIC LYMPHOCYTIC LEUKAEMIA
     Route: 048
     Dates: start: 20170505

REACTIONS (12)
  - Platelet count decreased [Unknown]
  - Scrotal haematocoele [Recovered/Resolved]
  - Sneezing [Unknown]
  - White blood cell count decreased [Not Recovered/Not Resolved]
  - Eye haemorrhage [Recovered/Resolved]
  - Incorrect dose administered [Recovered/Resolved]
  - Burning sensation [Unknown]
  - White blood cell count increased [Unknown]
  - Foreign body [Recovered/Resolved]
  - Epistaxis [Recovered/Resolved]
  - Loss of consciousness [Recovered/Resolved]
  - Off label use [Recovered/Resolved]

NARRATIVE: CASE EVENT DATE: 20160608
